FAERS Safety Report 21075525 (Version 1)
Quarter: 2022Q3

REPORT INFORMATION
  Report Type: Spontaneous
  Country: US (occurrence: None)
  Receive Date: 20220712
  Receipt Date: 20220712
  Transmission Date: 20221026
  Serious: Yes (Death)
  Sender: FDA-Public Use
  Company Number: None

PATIENT
  Age: 56 Year
  Sex: Female

DRUGS (1)
  1. ENOXAPARIN [Suspect]
     Active Substance: ENOXAPARIN

REACTIONS (8)
  - COVID-19 pneumonia [None]
  - International normalised ratio increased [None]
  - Hypotension [None]
  - Abdominal distension [None]
  - Retroperitoneal haemorrhage [None]
  - Abdominal wall haematoma [None]
  - Pelvic haemorrhage [None]
  - Cardiac arrest [None]

NARRATIVE: CASE EVENT DATE: 20211029
